FAERS Safety Report 25488687 (Version 1)
Quarter: 2025Q2

REPORT INFORMATION
  Report Type: Spontaneous
  Country: US (occurrence: US)
  Receive Date: 20250627
  Receipt Date: 20250627
  Transmission Date: 20250717
  Serious: Yes (Hospitalization)
  Sender: ROCHE
  Company Number: US-ROCHE-10000319386

PATIENT
  Age: 42 Year
  Sex: Female

DRUGS (21)
  1. XOLAIR [Suspect]
     Active Substance: OMALIZUMAB
     Indication: Asthma
     Dosage: 300MG/2ML
     Route: 058
     Dates: start: 20250523
  2. PREDNISONE [Concomitant]
     Active Substance: PREDNISONE
  3. ALBUTEROL [Concomitant]
     Active Substance: ALBUTEROL
  4. TRELEGY ELLIPTA [Concomitant]
     Active Substance: FLUTICASONE FUROATE\UMECLIDINIUM BROMIDE\VILANTEROL TRIFENATATE
  5. AZITHROMYCIN ANHYDROUS [Concomitant]
     Active Substance: AZITHROMYCIN ANHYDROUS
  6. SOOLANTRA 1% [Concomitant]
  7. HYDROCODONE BITARTRATE AND ACETAMINOPHEN [Concomitant]
     Active Substance: ACETAMINOPHEN\HYDROCODONE BITARTRATE
  8. VYVANSE [Concomitant]
     Active Substance: LISDEXAMFETAMINE DIMESYLATE
  9. PROMETHAZINE [Concomitant]
     Active Substance: PROMETHAZINE HYDROCHLORIDE
  10. PIMOZIDE [Concomitant]
     Active Substance: PIMOZIDE
  11. FLUCONAZOLE [Concomitant]
     Active Substance: FLUCONAZOLE
  12. ERYTHROMYCIN [Concomitant]
     Active Substance: ERYTHROMYCIN
  13. PREGABALIN [Concomitant]
     Active Substance: PREGABALIN
  14. ALBUTEROL\IPRATROPIUM [Concomitant]
     Active Substance: ALBUTEROL\IPRATROPIUM
  15. BACLOFEN [Concomitant]
     Active Substance: BACLOFEN
  16. CLONAZEPAM [Concomitant]
     Active Substance: CLONAZEPAM
  17. LUBIPROSTONE [Concomitant]
     Active Substance: LUBIPROSTONE
  18. PANTOPRAZOLE [Concomitant]
     Active Substance: PANTOPRAZOLE
  19. FUROSEMIDE [Concomitant]
     Active Substance: FUROSEMIDE
  20. BUPRENORPHINE [Concomitant]
     Active Substance: BUPRENORPHINE
  21. TRULANCE [Concomitant]
     Active Substance: PLECANATIDE

REACTIONS (1)
  - Pulmonary sepsis [Unknown]
